FAERS Safety Report 9477499 (Version 1)
Quarter: 2013Q3

REPORT INFORMATION
  Report Type: Spontaneous
  Country: US (occurrence: US)
  Receive Date: 20130827
  Receipt Date: 20130827
  Transmission Date: 20140515
  Serious: Yes (Hospitalization, Other)
  Sender: FDA-Public Use
  Company Number: US-ROCHE-1263192

PATIENT
  Age: 60 Year
  Sex: Female

DRUGS (3)
  1. CELLCEPT [Suspect]
     Indication: AUTOIMMUNE HEPATITIS
     Dosage: 1 IN THE MORNING, 1 IN THE EVENING
     Route: 048
     Dates: start: 201209
  2. HYDROCORTISONE [Concomitant]
     Dosage: 20MG IN THE AM/7.5MG IN THE AFTERNOON AS REQUIRED
     Route: 065
  3. SYNTHROID [Concomitant]
     Dosage: 1 DAILY
     Route: 065

REACTIONS (16)
  - Concussion [Unknown]
  - Fall [Unknown]
  - Loss of consciousness [Unknown]
  - Partial seizures [Unknown]
  - Vomiting [Recovered/Resolved]
  - Clumsiness [Unknown]
  - Gait disturbance [Unknown]
  - Tongue disorder [Not Recovered/Not Resolved]
  - Speech disorder [Not Recovered/Not Resolved]
  - Head injury [Unknown]
  - Amnesia [Recovered/Resolved]
  - Loss of consciousness [Unknown]
  - Speech disorder [Not Recovered/Not Resolved]
  - Headache [Unknown]
  - Asthenia [Unknown]
  - Paraesthesia [Unknown]
